FAERS Safety Report 4573021-6 (Version None)
Quarter: 2005Q1

REPORT INFORMATION
  Report Type: 
  Country: None (occurrence: None)
  Receive Date: 20050204
  Receipt Date: 20050131
  Transmission Date: 20050727
  Serious: Yes (Life-Threatening, Hospitalization, Disabling)
  Sender: FDA-Public Use
  Company Number: 2005-124777-NL

PATIENT
  Age: 29 Year
  Sex: Female

DRUGS (3)
  1. MIRTAZAPINE [Suspect]
     Indication: DEPRESSION
     Dosage: 1 DF QD
     Dates: start: 20050118, end: 20050119
  2. ACETAMINOPHEN [Suspect]
  3. ZOPICLONE [Concomitant]

REACTIONS (3)
  - JAUNDICE [None]
  - OVERDOSE [None]
  - PRURITUS [None]
